FAERS Safety Report 6541274-0 (Version None)
Quarter: 2010Q1

REPORT INFORMATION
  Report Type: 
  Country: None (occurrence: None)
  Receive Date: 20100118
  Receipt Date: 20100112
  Transmission Date: 20100710
  Serious: Yes (Hospitalization)
  Sender: FDA-Public Use
  Company Number: US-ELI_LILLY_AND_COMPANY-US201001002340

PATIENT
  Sex: Male

DRUGS (11)
  1. HUMULIN R [Suspect]
     Indication: DIABETES MELLITUS
     Dosage: 32 U, 2/D
     Dates: start: 20080101
  2. HUMULIN R [Suspect]
     Dosage: 30 U, OTHER
     Dates: start: 20080101
  3. HUMULIN R [Suspect]
     Dosage: UNK, AS NEEDED
     Dates: start: 20080101
  4. LANTUS [Concomitant]
  5. ZETIA [Concomitant]
  6. METOPROLOL [Concomitant]
  7. JANUVIA [Concomitant]
  8. PROZAC [Concomitant]
  9. SIMVASTATIN [Concomitant]
  10. GLYBURIDE [Concomitant]
  11. TRAZODONE [Concomitant]

REACTIONS (9)
  - ARTHRITIS [None]
  - BLOOD GLUCOSE DECREASED [None]
  - BLOOD GLUCOSE INCREASED [None]
  - CEREBRAL HAEMORRHAGE [None]
  - FALL [None]
  - HEAD INJURY [None]
  - INTRACRANIAL PRESSURE INCREASED [None]
  - TREATMENT NONCOMPLIANCE [None]
  - VISUAL ACUITY REDUCED [None]
